FAERS Safety Report 18049140 (Version 3)
Quarter: 2020Q3

REPORT INFORMATION
  Report Type: Spontaneous
  Country: US (occurrence: US)
  Receive Date: 20200721
  Receipt Date: 20200729
  Transmission Date: 20201103
  Serious: No
  Sender: FDA-Public Use
  Company Number: US-PFIZER INC-2020136060

PATIENT
  Age: 59 Year
  Sex: Female

DRUGS (1)
  1. ELELYSO [Suspect]
     Active Substance: TALIGLUCERASE ALFA
     Dosage: 1800 UNITS, EVERY 14 DAYS
     Route: 042
     Dates: start: 201708

REACTIONS (6)
  - Oropharyngeal pain [Recovered/Resolved]
  - Drug ineffective [Unknown]
  - Incorrect route of product administration [Unknown]
  - Nasal congestion [Unknown]
  - Sneezing [Recovered/Resolved]
  - Infusion related reaction [Unknown]
